FAERS Safety Report 18945724 (Version 2)
Quarter: 2021Q1

REPORT INFORMATION
  Report Type: Report from Study
  Country: IT (occurrence: IT)
  Receive Date: 20210226
  Receipt Date: 20210303
  Transmission Date: 20210420
  Serious: Yes (Other)
  Sender: FDA-Public Use
  Company Number: IT-UCBSA-2021007741

PATIENT
  Age: 25 Year
  Sex: Female

DRUGS (1)
  1. LEVETIRACETAM. [Suspect]
     Active Substance: LEVETIRACETAM
     Indication: JUVENILE MYOCLONIC EPILEPSY
     Dosage: 2500 MILLIGRAMS PER DAY

REACTIONS (3)
  - Myoclonic epilepsy [Unknown]
  - Therapeutic product effect incomplete [Unknown]
  - Generalised tonic-clonic seizure [Unknown]
